FAERS Safety Report 22060905 (Version 1)
Quarter: 2023Q1

REPORT INFORMATION
  Report Type: Spontaneous
  Country: AU (occurrence: AU)
  Receive Date: 20230303
  Receipt Date: 20230303
  Transmission Date: 20230417
  Serious: Yes (Other)
  Sender: FDA-Public Use
  Company Number: AU-BoehringerIngelheim-2023-BI-222736

PATIENT
  Age: 31 Year
  Sex: Female

DRUGS (8)
  1. CLONIDINE [Suspect]
     Active Substance: CLONIDINE
     Indication: Surgery
     Dates: start: 20220619
  2. DEXAMETHASONE [Suspect]
     Active Substance: DEXAMETHASONE
     Indication: Surgery
     Dates: start: 20220619
  3. FENTANYL [Suspect]
     Active Substance: FENTANYL
     Indication: Surgery
     Dates: start: 20220619
  4. GRANISETRON [Suspect]
     Active Substance: GRANISETRON
     Indication: Surgery
     Dates: start: 20220619
  5. PARECOXIB SODIUM [Suspect]
     Active Substance: PARECOXIB SODIUM
     Indication: Surgery
     Dates: start: 20220619
  6. PROPOFOL [Suspect]
     Active Substance: PROPOFOL
     Indication: Surgery
     Dates: start: 20220619
  7. ROCURONIUM BROMIDE [Suspect]
     Active Substance: ROCURONIUM BROMIDE
     Indication: Surgery
     Dates: start: 20220619
  8. SUGAMMADEX [Suspect]
     Active Substance: SUGAMMADEX
     Indication: Surgery
     Dates: start: 20220619

REACTIONS (3)
  - Swelling face [Unknown]
  - Stridor [Unknown]
  - Rash [Unknown]
